FAERS Safety Report 13360609 (Version 2)
Quarter: 2017Q2

REPORT INFORMATION
  Report Type: Report from Study
  Country: US (occurrence: US)
  Receive Date: 20170322
  Receipt Date: 20170403
  Transmission Date: 20170830
  Serious: Yes (Death, Hospitalization)
  Sender: FDA-Public Use
  Company Number: US-ACTELION-A-US2016-147198

PATIENT
  Age: 71 Year
  Sex: Female

DRUGS (1)
  1. OPSUMIT [Suspect]
     Active Substance: MACITENTAN
     Indication: PULMONARY ARTERIAL HYPERTENSION
     Dosage: 10 MG, QD
     Route: 048
     Dates: start: 20160514, end: 20170228

REACTIONS (16)
  - Pneumonia [Unknown]
  - Dry mouth [Unknown]
  - Metastases to central nervous system [Fatal]
  - Pulmonary embolism [Unknown]
  - Breast cancer [Fatal]
  - Debridement [Unknown]
  - Dyspnoea [Fatal]
  - Productive cough [Unknown]
  - Oropharyngeal pain [Unknown]
  - Anaemia [Fatal]
  - Hypoxia [Unknown]
  - Fatigue [Unknown]
  - Transfusion [Unknown]
  - Acute respiratory failure [Fatal]
  - Pyrexia [Unknown]
  - Packed red blood cell transfusion [Unknown]

NARRATIVE: CASE EVENT DATE: 20160705
